FAERS Safety Report 6007239-2 (Version None)
Quarter: 2008Q4

REPORT INFORMATION
  Report Type: 
  Country: None (occurrence: None)
  Receive Date: 20081217
  Receipt Date: 20080306
  Transmission Date: 20090506
  Serious: Yes (Other)
  Sender: FDA-Public Use
  Company Number: US-ASTRAZENECA-2008UW02661

PATIENT
  Age: 28538 Day
  Sex: Male

DRUGS (3)
  1. CRESTOR [Suspect]
     Indication: BLOOD CHOLESTEROL INCREASED
     Route: 048
     Dates: end: 20080201
  2. NIASPAN [Concomitant]
     Indication: CORONARY ARTERY DISEASE
  3. WARFARIN SODIUM [Concomitant]
     Indication: THROMBOSIS PROPHYLAXIS

REACTIONS (1)
  - BLOOD CREATINE PHOSPHOKINASE INCREASED [None]
